FAERS Safety Report 11911639 (Version 1)
Quarter: 2016Q1

REPORT INFORMATION
  Report Type: Spontaneous
  Country: FR (occurrence: FR)
  Receive Date: 20160112
  Receipt Date: 20160112
  Transmission Date: 20160526
  Serious: Yes (Hospitalization)
  Sender: FDA-Public Use
  Company Number: PHHY2015FR172010

PATIENT
  Age: 56 Year
  Sex: Female

DRUGS (2)
  1. ADRENALINE [Suspect]
     Active Substance: EPINEPHRINE
     Indication: PRODUCT USED FOR UNKNOWN INDICATION
     Route: 065
  2. AMOXICILLIN SANDOZ [Suspect]
     Active Substance: AMOXICILLIN
     Indication: URINARY TRACT INFECTION
     Dosage: 1 G
     Route: 048
     Dates: start: 20141219, end: 20141219

REACTIONS (3)
  - Urticaria [Recovered/Resolved]
  - Angioedema [Recovered/Resolved]
  - Bronchospasm [Recovered/Resolved]

NARRATIVE: CASE EVENT DATE: 20141219
